FAERS Safety Report 6974679-4 (Version None)
Quarter: 2010Q3

REPORT INFORMATION
  Report Type: 
  Country: None (occurrence: None)
  Receive Date: 20100909
  Receipt Date: 20081202
  Transmission Date: 20110219
  Serious: No
  Sender: FDA-Public Use
  Company Number: US-WYE-H07035408

PATIENT
  Sex: Male
  Weight: 93.07 kg

DRUGS (3)
  1. PRISTIQ [Suspect]
     Indication: DEPRESSION
     Route: 048
     Dates: start: 20080617
  2. KLONOPIN [Concomitant]
     Indication: ANXIETY
  3. VYVANSE [Suspect]
     Indication: ATTENTION DEFICIT/HYPERACTIVITY DISORDER
     Route: 048
     Dates: start: 20080814

REACTIONS (2)
  - LOSS OF CONSCIOUSNESS [None]
  - MUSCLE TWITCHING [None]
